FAERS Safety Report 18440748 (Version 1)
Quarter: 2020Q4

REPORT INFORMATION
  Report Type: Spontaneous
  Country: CA (occurrence: CA)
  Receive Date: 20201029
  Receipt Date: 20201029
  Transmission Date: 20210114
  Serious: Yes (Other)
  Sender: FDA-Public Use
  Company Number: CA-PFIZER INC-2020416609

PATIENT
  Sex: Female

DRUGS (1)
  1. LORLATINIB [Suspect]
     Active Substance: LORLATINIB
     Indication: NON-SMALL CELL LUNG CANCER
     Dosage: UNK

REACTIONS (12)
  - Dry skin [Unknown]
  - Rash [Unknown]
  - Blood triglycerides increased [Unknown]
  - Cognitive disorder [Unknown]
  - Blood cholesterol increased [Unknown]
  - Electrocardiogram QT prolonged [Unknown]
  - Insomnia [Unknown]
  - Aspartate aminotransferase increased [Unknown]
  - Oedema peripheral [Unknown]
  - Mood altered [Unknown]
  - Diarrhoea [Unknown]
  - Dry mouth [Unknown]
